FAERS Safety Report 7951864-6 (Version None)
Quarter: 2011Q4

REPORT INFORMATION
  Report Type: 
  Country: None (occurrence: None)
  Receive Date: 20111201
  Receipt Date: 20111201
  Transmission Date: 20120403
  Serious: Yes (Other)
  Sender: FDA-Public Use
  Company Number: None

PATIENT
  Age: 46 Year
  Sex: Female
  Weight: 66.224 kg

DRUGS (2)
  1. METFORMIN HCL [Suspect]
     Indication: DIABETES MELLITUS
     Dosage: 500 MG
     Route: 048
     Dates: start: 20090301, end: 20100301
  2. METFORMIN HCL [Concomitant]
     Indication: DIABETES MELLITUS
     Dosage: 500 MG
     Route: 048
     Dates: start: 20100301, end: 20111012

REACTIONS (2)
  - HYPOGLYCAEMIA [None]
  - DIARRHOEA [None]
